FAERS Safety Report 5776350-3 (Version None)
Quarter: 2008Q2

REPORT INFORMATION
  Report Type: 
  Country: None (occurrence: None)
  Receive Date: 20080616
  Receipt Date: 20080603
  Transmission Date: 20081010
  Serious: Yes (Hospitalization)
  Sender: FDA-Public Use
  Company Number: OMPQ-NO-0805S-0337

PATIENT
  Age: 71 Year
  Sex: Male

DRUGS (12)
  1. OMNIPAQUE 140 [Suspect]
     Indication: METASTASIS
     Dosage: 92 ML, SINGLE DOSE, INTRAVASCULAR
     Dates: start: 20080429, end: 20080429
  2. CASODEX [Concomitant]
  3. ADALAT [Concomitant]
  4. LASIX [Concomitant]
  5. SIMVASTATIN (LIPOVAS) [Concomitant]
  6. MOSAPRIDE CITRATE (GASMOTIN) [Concomitant]
  7. TEPRENONE (SELBEX) [Concomitant]
  8. WARFARIN SODIUM [Concomitant]
  9. ACETYLSALICYLIC ACID (BAYASPIRIN) [Concomitant]
  10. LANSOPRAZOLE [Concomitant]
  11. ALFACALCIDOL (ONEALFA) [Concomitant]
  12. DIGOXIN [Concomitant]

REACTIONS (4)
  - ERYTHEMA MULTIFORME [None]
  - GLOSSITIS [None]
  - HAEMODIALYSIS [None]
  - LIP SWELLING [None]
